FAERS Safety Report 8436652 (Version 2)
Quarter: 2013Q1

REPORT INFORMATION
  Report Type: Spontaneous
  Country: BR (occurrence: BR)
  Receive Date: 20120302
  Receipt Date: 20130306
  Transmission Date: 20140127
  Serious: Yes (Other)
  Sender: FDA-Public Use
  Company Number: BR-AMGEN-BRASP2012011392

PATIENT
  Age: 55 Year
  Sex: Female
  Weight: 48 kg

DRUGS (3)
  1. ENBREL [Suspect]
     Indication: RHEUMATOID ARTHRITIS
     Dosage: 50 MG, ONCE WEEKLY
     Route: 058
     Dates: start: 201109
  2. ENBREL [Suspect]
     Dosage: 50 MG, QWK
     Route: 058
     Dates: end: 201210
  3. PREDNISONE [Concomitant]
     Dosage: 5 MG, 2X/DAY

REACTIONS (10)
  - Lung disorder [Not Recovered/Not Resolved]
  - Dyspnoea [Not Recovered/Not Resolved]
  - Ear discomfort [Unknown]
  - Fatigue [Not Recovered/Not Resolved]
  - Ear pain [Not Recovered/Not Resolved]
  - Weight decreased [Not Recovered/Not Resolved]
  - Hypoaesthesia [Unknown]
  - Diarrhoea [Unknown]
  - Dizziness [Unknown]
  - Decreased appetite [Unknown]
